FAERS Safety Report 8482356-6 (Version None)
Quarter: 2012Q3

REPORT INFORMATION
  Report Type: 
  Country: None (occurrence: None)
  Receive Date: 20120702
  Receipt Date: 20120619
  Transmission Date: 20120928
  Serious: Yes (Other)
  Sender: FDA-Public Use
  Company Number: US-JNJFOC-20120402478

PATIENT
  Age: 77 Year
  Sex: Male
  Weight: 122.47 kg

DRUGS (3)
  1. VICODIN [Concomitant]
     Indication: EYE PAIN
     Route: 065
  2. POLYSPORIN OINTMENT [Suspect]
     Indication: EYE INJURY
     Dosage: HALF AN INCH AMOUNT
     Route: 047
  3. CHEMOTHERAPY [Concomitant]
     Indication: NEOPLASM MALIGNANT
     Route: 065

REACTIONS (3)
  - DRUG DISPENSING ERROR [None]
  - ULCERATIVE KERATITIS [None]
  - INCORRECT ROUTE OF DRUG ADMINISTRATION [None]
